FAERS Safety Report 18311915 (Version 1)
Quarter: 2020Q3

REPORT INFORMATION
  Report Type: Spontaneous
  Country: CA (occurrence: CA)
  Receive Date: 20200925
  Receipt Date: 20200925
  Transmission Date: 20201103
  Serious: Yes (Hospitalization)
  Sender: FDA-Public Use
  Company Number: CA-ACCORD-202601

PATIENT
  Sex: Female

DRUGS (9)
  1. DESOXIMETASONE. [Suspect]
     Active Substance: DESOXIMETASONE
     Indication: SWELLING
  2. DESOXIMETASONE. [Suspect]
     Active Substance: DESOXIMETASONE
     Indication: SWELLING
  3. REMICADE [Suspect]
     Active Substance: INFLIXIMAB
     Indication: RHEUMATOID ARTHRITIS
     Dosage: POWDER FOR SOLUTION INTRAVENOUS
     Route: 042
  4. ARAVA [Suspect]
     Active Substance: LEFLUNOMIDE
     Indication: RHEUMATOID ARTHRITIS
     Route: 048
  5. DESOXIMETASONE. [Suspect]
     Active Substance: DESOXIMETASONE
     Indication: SWELLING
     Route: 048
  6. DESOXIMETASONE. [Suspect]
     Active Substance: DESOXIMETASONE
     Indication: SWELLING
     Dosage: NOT SPECIFIED DOSAGE FORM
  7. METHOTREXATE. [Suspect]
     Active Substance: METHOTREXATE
     Indication: RHEUMATOID ARTHRITIS
  8. ACTEMRA [Suspect]
     Active Substance: TOCILIZUMAB
     Indication: RHEUMATOID ARTHRITIS
  9. PREDNISONE. [Suspect]
     Active Substance: PREDNISONE
     Indication: RHEUMATOID ARTHRITIS

REACTIONS (3)
  - Hypersensitivity [Unknown]
  - Drug ineffective [Unknown]
  - Malaise [Unknown]
